FAERS Safety Report 7385494-4 (Version None)
Quarter: 2011Q1

REPORT INFORMATION
  Report Type: 
  Country: None (occurrence: None)
  Receive Date: 20110330
  Receipt Date: 20110323
  Transmission Date: 20110831
  Serious: Yes (Death, Hospitalization, Other)
  Sender: FDA-Public Use
  Company Number: US-BRISTOL-MYERS SQUIBB COMPANY-15551005

PATIENT
  Age: 71 Year
  Sex: Female
  Weight: 64 kg

DRUGS (15)
  1. TRIAMTERENE AND HYDROCHLOROTHIAZIDE [Concomitant]
  2. OMEGA 3 FATTY ACID [Concomitant]
  3. VITAMIN D [Concomitant]
  4. GLUCOSAMINE [Concomitant]
  5. CARBOPLATIN [Suspect]
     Indication: NON-SMALL CELL LUNG CANCER
     Dosage: 1DF:6AUC 475MG ON DAY 1,22
     Route: 042
     Dates: start: 20100527, end: 20100527
  6. MULTI-VITAMIN [Concomitant]
  7. COMPAZINE [Concomitant]
  8. CETUXIMAB [Suspect]
     Indication: NON-SMALL CELL LUNG CANCER
     Dosage: 676MG 250MG/M2:ON DAY 8,1522,29,36
     Route: 042
     Dates: start: 20100527, end: 20100527
  9. ALLOPURINOL [Concomitant]
  10. VERAPAMIL [Concomitant]
  11. VITAMIN B [Concomitant]
  12. CODEINE [Concomitant]
  13. MINOCYCLINE [Concomitant]
  14. PACLITAXEL [Suspect]
     Indication: NON-SMALL CELL LUNG CANCER
     Dosage: 340MG ON DAY 1,22
     Route: 042
     Dates: start: 20100527, end: 20100527
  15. SPIRIVA [Concomitant]

REACTIONS (13)
  - NAUSEA [None]
  - BLOOD ALKALINE PHOSPHATASE INCREASED [None]
  - ENTEROCOLITIS INFECTIOUS [None]
  - CONSTIPATION [None]
  - SEPSIS [None]
  - HYPERGLYCAEMIA [None]
  - NEUTROPHIL COUNT DECREASED [None]
  - PLATELET COUNT DECREASED [None]
  - DEHYDRATION [None]
  - GASTROINTESTINAL INFECTION [None]
  - HYPERCALCAEMIA [None]
  - WHITE BLOOD CELL COUNT DECREASED [None]
  - MUSCULAR WEAKNESS [None]
